FAERS Safety Report 6439657-2 (Version None)
Quarter: 2009Q4

REPORT INFORMATION
  Report Type: 
  Country: None (occurrence: None)
  Receive Date: 20091112
  Receipt Date: 20091112
  Transmission Date: 20100525
  Serious: No
  Sender: FDA-Public Use
  Company Number: None

PATIENT

DRUGS (2)
  1. OS-CAL CHEWABLE 500 +D 500MG CALCIUM 500IU VITAMIN D 500MG CALCIUM, 50 [Suspect]
  2. OS-CAL CHEWABLE 500 + D ^EXTRA ., 500MG CALCIUM 400IU VITAMIN D 500MG [Suspect]

REACTIONS (3)
  - MEDICATION ERROR [None]
  - PRODUCT LABEL CONFUSION [None]
  - PRODUCT QUALITY ISSUE [None]
